FAERS Safety Report 10252308 (Version 1)
Quarter: 2014Q2

REPORT INFORMATION
  Report Type: Spontaneous
  Country: US (occurrence: US)
  Receive Date: 20140623
  Receipt Date: 20140623
  Transmission Date: 20141212
  Serious: Yes (Hospitalization, Other)
  Sender: FDA-Public Use
  Company Number: US-JNJFOC-20140607595

PATIENT
  Age: 67 Year
  Sex: Female

DRUGS (11)
  1. LEVOFLOXACIN [Suspect]
     Indication: STREPTOCOCCAL INFECTION
     Route: 042
  2. LEVOFLOXACIN [Suspect]
     Indication: STREPTOCOCCAL INFECTION
     Route: 048
  3. VANCOMYCIN [Suspect]
     Indication: STREPTOCOCCAL INFECTION
     Route: 050
  4. CEFTAZIDIME [Suspect]
     Indication: STREPTOCOCCAL INFECTION
     Route: 050
  5. PREDNISONE [Concomitant]
     Route: 048
  6. PREDNISONE [Concomitant]
     Route: 048
  7. MOXIFLOXACIN [Concomitant]
     Route: 047
  8. AMLODIPINE [Concomitant]
     Indication: HYPERTENSION
     Route: 065
  9. METOPROLOL [Concomitant]
     Indication: HYPERTENSION
     Route: 065
  10. LEVOTHYROXINE [Concomitant]
     Indication: HYPOTHYROIDISM
     Route: 065
  11. PREDNISONE [Concomitant]
     Route: 048

REACTIONS (1)
  - Vanishing bile duct syndrome [Recovering/Resolving]
